FAERS Safety Report 24836054 (Version 3)
Quarter: 2025Q1

REPORT INFORMATION
  Report Type: Spontaneous
  Country: CN (occurrence: CN)
  Receive Date: 20250113
  Receipt Date: 20250212
  Transmission Date: 20250409
  Serious: Yes (Life-Threatening, Hospitalization, Other)
  Sender: SANOFI AVENTIS
  Company Number: CN-DialogSolutions-SAAVPROD-PI727720-C1

PATIENT
  Age: 54 Year
  Sex: Male

DRUGS (7)
  1. PREDNISONE [Suspect]
     Active Substance: PREDNISONE
     Indication: Renal transplant
     Dosage: 20 MG, QD
     Dates: start: 2022, end: 2022
  2. PREDNISONE [Suspect]
     Active Substance: PREDNISONE
     Dosage: PROGRESSIVELY TAPERED TO 5 MG/DAY
     Dates: start: 2022, end: 202210
  3. MYCOPHENOLATE MOFETIL [Suspect]
     Active Substance: MYCOPHENOLATE MOFETIL
     Indication: Renal transplant
     Dates: start: 2022, end: 202210
  4. MYCOPHENOLATE MOFETIL [Suspect]
     Active Substance: MYCOPHENOLATE MOFETIL
     Dates: start: 202204, end: 20221011
  5. TACROLIMUS [Suspect]
     Active Substance: TACROLIMUS
     Indication: Renal transplant
     Dates: start: 2022, end: 202210
  6. TACROLIMUS [Suspect]
     Active Substance: TACROLIMUS
     Dates: start: 202204, end: 20221011
  7. THYMOGLOBULIN [Concomitant]
     Active Substance: LAPINE T-LYMPHOCYTE IMMUNE GLOBULIN
     Indication: Renal transplant
     Dates: start: 2022, end: 2022

REACTIONS (13)
  - Coma [Unknown]
  - Central nervous system viral infection [Not Recovered/Not Resolved]
  - Memory impairment [Not Recovered/Not Resolved]
  - Cognitive disorder [Not Recovered/Not Resolved]
  - Cerebral ischaemia [Not Recovered/Not Resolved]
  - Demyelination [Not Recovered/Not Resolved]
  - Delirium [Not Recovered/Not Resolved]
  - Mania [Not Recovered/Not Resolved]
  - Aphasia [Not Recovered/Not Resolved]
  - Hypotonia [Not Recovered/Not Resolved]
  - Hantaviral infection [Not Recovered/Not Resolved]
  - Pneumonia bacterial [Unknown]
  - Pneumonia pneumococcal [Unknown]

NARRATIVE: CASE EVENT DATE: 20221001
